FAERS Safety Report 11811020 (Version 1)
Quarter: 2015Q4

REPORT INFORMATION
  Report Type: Spontaneous
  Country: US (occurrence: US)
  Receive Date: 20151208
  Receipt Date: 20151208
  Transmission Date: 20160305
  Serious: Yes (Other)
  Sender: FDA-Public Use
  Company Number: US-HORIZON-ACT-0213-2015

PATIENT
  Age: 3 Year
  Sex: Male

DRUGS (1)
  1. ACTIMMUNE [Suspect]
     Active Substance: INTERFERON GAMMA-1B
     Indication: COMBINED IMMUNODEFICIENCY
     Dosage: 14 ?G TIW
     Dates: start: 20140729, end: 20151123

REACTIONS (3)
  - Off label use [Unknown]
  - Therapy cessation [Unknown]
  - Lower limb fracture [Not Recovered/Not Resolved]

NARRATIVE: CASE EVENT DATE: 20151123
